FAERS Safety Report 9394542 (Version 1)
Quarter: 2013Q3

REPORT INFORMATION
  Report Type: Report from Study
  Country: AU (occurrence: AU)
  Receive Date: 20130711
  Receipt Date: 20130711
  Transmission Date: 20140515
  Serious: Yes (Other)
  Sender: FDA-Public Use
  Company Number: PHHY2009AU46472

PATIENT
  Age: 78 Year
  Sex: Male

DRUGS (5)
  1. EXJADE [Suspect]
     Indication: IRON OVERLOAD
     Dosage: 1 G, UNK
     Route: 048
  2. EXJADE [Suspect]
     Dosage: 500 MG, DAILY
     Route: 048
     Dates: start: 20091101
  3. EXJADE [Suspect]
     Dosage: 1250 MG, UNK
     Route: 048
     Dates: start: 20091123
  4. EXJADE [Suspect]
     Dosage: 1000 MG, UNK
     Route: 048
  5. EXJADE [Suspect]
     Dosage: 500 MG, UNK
     Route: 048

REACTIONS (3)
  - Haemorrhoids [Not Recovered/Not Resolved]
  - Diarrhoea [Recovered/Resolved]
  - Drug ineffective [Unknown]
